FAERS Safety Report 16212461 (Version 8)
Quarter: 2019Q4

REPORT INFORMATION
  Report Type: Spontaneous
  Country: US (occurrence: US)
  Receive Date: 20190418
  Receipt Date: 20191015
  Transmission Date: 20200122
  Serious: No
  Sender: FDA-Public Use
  Company Number: US-PFIZER INC-2019168470

PATIENT
  Age: 58 Year
  Sex: Female
  Weight: 81 kg

DRUGS (3)
  1. LYRICA [Suspect]
     Active Substance: PREGABALIN
     Indication: HERPES ZOSTER
     Dosage: 200 MG, 2X/DAY
     Route: 048
     Dates: start: 2019, end: 2019
  2. LYRICA [Suspect]
     Active Substance: PREGABALIN
     Indication: NEURALGIA
     Dosage: 200 MG, 3X/DAY
     Route: 048
     Dates: start: 2019, end: 2019
  3. CYMBALTA [Concomitant]
     Active Substance: DULOXETINE HYDROCHLORIDE
     Dosage: UNK

REACTIONS (5)
  - Malaise [Unknown]
  - Product dose omission [Unknown]
  - Insomnia [Unknown]
  - Restlessness [Unknown]
  - Nervousness [Unknown]

NARRATIVE: CASE EVENT DATE: 2019
